FAERS Safety Report 5023253-8 (Version None)
Quarter: 2006Q2

REPORT INFORMATION
  Report Type: 
  Country: None (occurrence: None)
  Receive Date: 20060428
  Receipt Date: 20060116
  Transmission Date: 20061013
  Serious: No
  Sender: FDA-Public Use
  Company Number: 012091

PATIENT
  Age: 53 Year
  Sex: Male

DRUGS (5)
  1. PRIALT [Suspect]
     Indication: NERVE INJURY
     Dosage: ONCE/HOUR, INTRATHECAL
     Route: 037
     Dates: start: 20050101, end: 20051001
  2. METHADONE HCL [Concomitant]
  3. DOXEPIN HCL [Concomitant]
  4. FLEXERIL [Concomitant]
  5. KLONOPIN [Concomitant]

REACTIONS (4)
  - ABNORMAL BEHAVIOUR [None]
  - HALLUCINATION [None]
  - PAIN [None]
  - VISUAL DISTURBANCE [None]
